FAERS Safety Report 15348315 (Version 1)
Quarter: 2018Q3

REPORT INFORMATION
  Report Type: Spontaneous
  Country: PL (occurrence: PL)
  Receive Date: 20180904
  Receipt Date: 20180904
  Transmission Date: 20181010
  Serious: Yes (Other)
  Sender: FDA-Public Use
  Company Number: PL-JNJFOC-20180535679

PATIENT
  Age: 63 Year
  Sex: Female
  Weight: 41 kg

DRUGS (1)
  1. SIMPONI [Suspect]
     Active Substance: GOLIMUMAB
     Indication: RHEUMATOID ARTHRITIS
     Route: 058
     Dates: start: 20170606

REACTIONS (2)
  - Drug dose omission [Unknown]
  - Device malfunction [Unknown]

NARRATIVE: CASE EVENT DATE: 20180506
